FAERS Safety Report 6310124-X (Version None)
Quarter: 2009Q3

REPORT INFORMATION
  Report Type: 
  Country: None (occurrence: None)
  Receive Date: 20090814
  Receipt Date: 20090803
  Transmission Date: 20100115
  Serious: Yes (Hospitalization)
  Sender: FDA-Public Use
  Company Number: CZ-WATSON-2009-06232

PATIENT
  Age: 19 Year
  Sex: Female

DRUGS (4)
  1. DIAZEPAM [Suspect]
     Indication: GENERAL ANAESTHESIA
     Dosage: UNK
  2. ATRACURIUM BESYLATE (WATSON LABORATORIES) [Suspect]
     Indication: ANAESTHESIA
     Dosage: UNK
  3. FENTANYL CITRATE [Suspect]
     Indication: ANALGESIA
     Dosage: UNK
  4. THIOPENTAL SODIUM [Suspect]
     Indication: ANAESTHESIA
     Dosage: UNK

REACTIONS (1)
  - ANAPHYLACTIC REACTION [None]
